FAERS Safety Report 4556897-8 (Version None)
Quarter: 2005Q1

REPORT INFORMATION
  Report Type: 
  Country: None (occurrence: None)
  Receive Date: 20050118
  Receipt Date: 20050106
  Transmission Date: 20050727
  Serious: Yes (Death, Life-Threatening, Hospitalization)
  Sender: FDA-Public Use
  Company Number: 211524

PATIENT
  Age: 61 Year
  Sex: Female

DRUGS (4)
  1. MABTHERA (RITUXIMAB) CONC FOR SOLUTION FOR INFUSION [Suspect]
     Indication: DIFFUSE LARGE B-CELL LYMPHOMA
     Dosage: 375 MG/M2, INTRAVENOUS
     Route: 042
  2. CISPLATIN [Suspect]
     Indication: DIFFUSE LARGE B-CELL LYMPHOMA
     Dosage: 100 MG/M2, INTRAVENOUS
     Route: 042
  3. CYTOSINE ARABINOSIDE HCL (CYTARABINE HYDROCHLORIDE) [Suspect]
     Indication: DIFFUSE LARGE B-CELL LYMPHOMA
     Dosage: 2000 MG/M2, INTRAVENOUS
     Route: 042
  4. DEXAMETHASONE [Suspect]
     Indication: DIFFUSE LARGE B-CELL LYMPHOMA
     Dosage: 40 MG,

REACTIONS (10)
  - ACIDOSIS [None]
  - ANAEMIA [None]
  - BACTERIAL SEPSIS [None]
  - DISEASE PROGRESSION [None]
  - DISSEMINATED INTRAVASCULAR COAGULATION [None]
  - LABORATORY TEST ABNORMAL [None]
  - NEUTROPENIA [None]
  - PLATELET COUNT DECREASED [None]
  - TACHYPNOEA [None]
  - WHITE BLOOD CELL COUNT DECREASED [None]
